FAERS Safety Report 9688205 (Version 1)
Quarter: 2013Q4

REPORT INFORMATION
  Report Type: Spontaneous
  Country: GB (occurrence: GB)
  Receive Date: 20131114
  Receipt Date: 20131114
  Transmission Date: 20140711
  Serious: Yes (Other)
  Sender: FDA-Public Use
  Company Number: GB-BRISTOL-MYERS SQUIBB COMPANY-19811488

PATIENT
  Age: 79 Year
  Sex: Male
  Weight: 90 kg

DRUGS (12)
  1. METFORMIN HCL [Suspect]
     Route: 048
     Dates: start: 20130601, end: 20130807
  2. ASPIRIN [Concomitant]
  3. BICALUTAMIDE [Concomitant]
  4. CANDESARTAN [Concomitant]
  5. FUROSEMIDE [Concomitant]
  6. LORAZEPAM [Concomitant]
  7. LUMIGAN [Concomitant]
  8. ORAMORPH [Concomitant]
  9. SERETIDE [Concomitant]
  10. SIMVASTATIN [Concomitant]
  11. TIOTROPIUM BROMIDE [Concomitant]
  12. VENTOLIN [Concomitant]

REACTIONS (4)
  - Confusional state [Recovered/Resolved]
  - Somnolence [Recovered/Resolved]
  - Speech disorder [Recovered/Resolved]
  - Malaise [Recovered/Resolved]
